FAERS Safety Report 8589381-5 (Version None)
Quarter: 2012Q3

REPORT INFORMATION
  Report Type: 
  Country: None (occurrence: None)
  Receive Date: 20120813
  Receipt Date: 20120809
  Transmission Date: 20120928
  Serious: Yes (Death, Hospitalization)
  Sender: FDA-Public Use
  Company Number: PHHY2012FR069379

PATIENT
  Age: 25 Year
  Sex: Female

DRUGS (20)
  1. BONIVA [Concomitant]
  2. VITAMIN D [Concomitant]
     Dosage: 100000 IU, UNK
  3. NEORECORMON [Concomitant]
  4. FLECAINIDE ACETATE [Concomitant]
     Dosage: 100 MG, UNK
  5. PROPYL-THIOURACIL [Concomitant]
  6. CEFTAZIDIME [Concomitant]
     Dosage: 1 G, UNK
     Dates: start: 20120101
  7. CREON [Concomitant]
     Dosage: 25000 IU, UNK
  8. TENORMIN [Concomitant]
  9. OLIMEL [Concomitant]
  10. VENOFER [Concomitant]
  11. ZITHROMAX [Concomitant]
     Dosage: 250 MG, UNK
  12. TARGOCID [Suspect]
     Dosage: UNK
     Dates: end: 20120123
  13. PREVIGEN [Suspect]
     Dosage: 100 MG/ML, UNK
     Route: 042
     Dates: end: 20120124
  14. PREDNISONE TAB [Concomitant]
  15. URSOLVAN [Concomitant]
     Dosage: 200 MG, UNK
  16. CHLORMADINONE ACETATE TAB [Concomitant]
  17. LANTUS [Concomitant]
     Dosage: 100 U/ML, UNK
  18. NEORAL [Suspect]
     Indication: LUNG TRANSPLANT
     Dosage: 75 MG, BID
     Dates: start: 20091101, end: 20120123
  19. ATARAX [Concomitant]
  20. CIPROFLOXACIN HYDROCHLORIDE [Concomitant]
     Dosage: UNK
     Dates: start: 20120101

REACTIONS (13)
  - PULMONARY OEDEMA [None]
  - RENAL IMPAIRMENT [None]
  - NEPHROPATHY TOXIC [None]
  - TOXICITY TO VARIOUS AGENTS [None]
  - HYPOXIA [None]
  - RESPIRATORY DISTRESS [None]
  - OVERDOSE [None]
  - LUNG DISORDER [None]
  - RENAL FAILURE [None]
  - COR PULMONALE ACUTE [None]
  - PSEUDOMONAS INFECTION [None]
  - ACUTE RESPIRATORY FAILURE [None]
  - LUNG TRANSPLANT REJECTION [None]
